FAERS Safety Report 4513405-5 (Version None)
Quarter: 2004Q4

REPORT INFORMATION
  Report Type: 
  Country: None (occurrence: None)
  Receive Date: 20041130
  Receipt Date: 20040916
  Transmission Date: 20050328
  Serious: No
  Sender: FDA-Public Use
  Company Number: US-BRISTOL-MYERS SQUIBB COMPANY-12704565

PATIENT
  Age: 64 Year
  Sex: Male
  Weight: 77 kg

DRUGS (11)
  1. ERBITUX [Suspect]
     Indication: COLON CANCER METASTATIC
     Dosage: START DATE 01-JUL-04
     Dates: start: 20040101, end: 20040101
  2. BENADRYL [Concomitant]
     Indication: PREMEDICATION
     Route: 048
  3. PERCOCET [Concomitant]
  4. RESTORIL [Concomitant]
  5. ULTRAM [Concomitant]
  6. WELLBUTRIN [Concomitant]
  7. NITRO [Concomitant]
  8. LASIX [Concomitant]
  9. FERROUS SULFATE TAB [Concomitant]
  10. MIRALAX [Concomitant]
  11. ALLOPURINOL [Concomitant]

REACTIONS (1)
  - NAIL DISORDER [None]
